FAERS Safety Report 7655957-2 (Version None)
Quarter: 2011Q3

REPORT INFORMATION
  Report Type: 
  Country: None (occurrence: None)
  Receive Date: 20110804
  Receipt Date: 20110728
  Transmission Date: 20111222
  Serious: Yes (Other)
  Sender: FDA-Public Use
  Company Number: TW-ROCHE-760832

PATIENT
  Age: 45 Year
  Sex: Male

DRUGS (2)
  1. BEVACIZUMAB [Suspect]
     Dosage: FIRST CYCLE.
     Route: 065
  2. BEVACIZUMAB [Suspect]
     Dosage: SECOND CYCLE.
     Route: 065

REACTIONS (1)
  - PNEUMOTHORAX [None]
